FAERS Safety Report 6929845-0 (Version None)
Quarter: 2010Q3

REPORT INFORMATION
  Report Type: 
  Country: None (occurrence: None)
  Receive Date: 20100817
  Receipt Date: 20100817
  Transmission Date: 20110219
  Serious: No
  Sender: FDA-Public Use
  Company Number: None

PATIENT
  Sex: Male
  Weight: 79 kg

DRUGS (1)
  1. SOLU-MEDROL [Suspect]

REACTIONS (3)
  - ACCIDENT AT WORK [None]
  - PRODUCT CONTAINER ISSUE [None]
  - TENDON DISORDER [None]
